FAERS Safety Report 21355988 (Version 1)
Quarter: 2022Q3

REPORT INFORMATION
  Report Type: Report from Study
  Country: ES (occurrence: ES)
  Receive Date: 20220920
  Receipt Date: 20220920
  Transmission Date: 20221027
  Serious: Yes (Death)
  Sender: FDA-Public Use
  Company Number: ES-PFIZER INC-202201169738

PATIENT
  Sex: Male

DRUGS (5)
  1. DOCETAXEL [Suspect]
     Active Substance: DOCETAXEL
     Indication: Hormone-refractory prostate cancer
     Dosage: PERIOD 2, 1-H INTRAVENOUS INFUSION ON DAY1 AND READMINISTERED EVERY 21 DAYS
     Route: 042
  2. PREDNISONE [Suspect]
     Active Substance: PREDNISONE
     Indication: Hormone-refractory prostate cancer
     Dosage: PERIOD 1, UNTIL RADIO-LOGICAL AND/OR CLINICAL PROGRESSION
     Route: 048
  3. PREDNISONE [Suspect]
     Active Substance: PREDNISONE
     Dosage: PERIOD 2
     Route: 048
  4. ABIRATERONE ACETATE [Suspect]
     Active Substance: ABIRATERONE ACETATE
     Indication: Hormone-refractory prostate cancer
     Dosage: PERIOD 1, FOUR 250 MG TABLETS, UNTIL RADIO-LOGICAL AND/OR CLINICAL PROGRESSION
     Route: 048
  5. ABIRATERONE ACETATE [Suspect]
     Active Substance: ABIRATERONE ACETATE
     Dosage: PERIOD 2
     Route: 048

REACTIONS (1)
  - Septic shock [Fatal]
